FAERS Safety Report 7379829-6 (Version None)
Quarter: 2011Q1

REPORT INFORMATION
  Report Type: 
  Country: None (occurrence: None)
  Receive Date: 20110329
  Receipt Date: 20110315
  Transmission Date: 20110831
  Serious: Yes (Hospitalization, Other)
  Sender: FDA-Public Use
  Company Number: AU-CELGENEUS-008-20785-11031638

PATIENT
  Sex: Female

DRUGS (3)
  1. DEXAMETHASONE [Concomitant]
     Route: 065
  2. MELPHALAN [Concomitant]
     Route: 065
  3. THALOMID [Suspect]
     Indication: MULTIPLE MYELOMA
     Dosage: 200 MILLIGRAM
     Route: 048
     Dates: start: 20100922

REACTIONS (5)
  - PYREXIA [None]
  - OEDEMA PERIPHERAL [None]
  - CARDIAC FLUTTER [None]
  - PARAESTHESIA [None]
  - DIARRHOEA [None]
